FAERS Safety Report 6641262-X (Version None)
Quarter: 2010Q1

REPORT INFORMATION
  Report Type: 
  Country: None (occurrence: None)
  Receive Date: 20100318
  Receipt Date: 20100306
  Transmission Date: 20100710
  Serious: No
  Sender: FDA-Public Use
  Company Number: US-B.I. PHARMACEUTICALS,INC./RIDGEFIELD-2010-BP-02757BP

PATIENT
  Age: 60 Year
  Sex: Male

DRUGS (8)
  1. SPIRIVA [Suspect]
     Dosage: 18 MCG
     Route: 055
     Dates: start: 20100201
  2. SPIRIVA [Suspect]
     Dosage: 18 MCG
     Route: 055
     Dates: start: 20091101, end: 20100101
  3. XANAX [Concomitant]
     Indication: ANXIETY
  4. CYMBALTA [Concomitant]
     Indication: ANXIETY
  5. ASPIRIN [Concomitant]
     Indication: ANTICOAGULANT THERAPY
  6. LIPITOR [Concomitant]
     Indication: BLOOD CHOLESTEROL INCREASED
  7. PREVACID [Concomitant]
     Indication: HIATUS HERNIA
  8. MULTI-VITAMIN [Concomitant]
     Indication: ROUTINE HEALTH MAINTENANCE

REACTIONS (4)
  - ECZEMA [None]
  - RASH [None]
  - RASH MACULO-PAPULAR [None]
  - RASH PRURITIC [None]
